FAERS Safety Report 12312926 (Version 2)
Quarter: 2017Q3

REPORT INFORMATION
  Report Type: Report from Study
  Country: US (occurrence: US)
  Receive Date: 20160428
  Receipt Date: 20170811
  Transmission Date: 20171127
  Serious: Yes (Life-Threatening, Other)
  Sender: FDA-Public Use
  Company Number: US-AMGEN-USASL2016049588

PATIENT
  Age: 75 Year
  Sex: Female

DRUGS (3)
  1. ENBREL [Suspect]
     Active Substance: ETANERCEPT
     Indication: SYSTEMIC LUPUS ERYTHEMATOSUS
     Dosage: UNK
     Route: 065
  2. ORENCIA [Suspect]
     Active Substance: ABATACEPT
     Indication: PRODUCT USED FOR UNKNOWN INDICATION
     Dosage: UNK
     Route: 065
     Dates: start: 2000
  3. ENBREL [Suspect]
     Active Substance: ETANERCEPT
     Indication: RHEUMATOID ARTHRITIS
     Dosage: 50 MG, QWK
     Route: 065
     Dates: start: 1998

REACTIONS (14)
  - Rheumatoid arthritis [Unknown]
  - Pain [Recovering/Resolving]
  - Vision blurred [Not Recovered/Not Resolved]
  - Staphylococcal infection [Unknown]
  - Colitis [Not Recovered/Not Resolved]
  - Deafness bilateral [Unknown]
  - Gait disturbance [Unknown]
  - Osteomyelitis [Unknown]
  - Adverse drug reaction [Unknown]
  - Leg amputation [Unknown]
  - Arthritis infective [Unknown]
  - Arthritis [Unknown]
  - Feeling abnormal [Unknown]
  - Off label use [Unknown]

NARRATIVE: CASE EVENT DATE: 1998
